FAERS Safety Report 24166901 (Version 2)
Quarter: 2025Q1

REPORT INFORMATION
  Report Type: Report from Study
  Country: US (occurrence: US)
  Receive Date: 20240802
  Receipt Date: 20250121
  Transmission Date: 20250409
  Serious: Yes (Other)
  Sender: Unknown Manufacturer
  Company Number: US-MIRUM PHARMACEUTICALS, INC.-US-MIR-24-00587

PATIENT
  Age: 18 Year
  Sex: Female
  Weight: 53.98 kg

DRUGS (1)
  1. LIVMARLI [Suspect]
     Active Substance: MARALIXIBAT CHLORIDE
     Indication: Biliary obstruction
     Dosage: 2.6 MILLILITER, QD
     Route: 065
     Dates: start: 20220208, end: 20240703

REACTIONS (2)
  - Liver transplant [Unknown]
  - Off label use [Unknown]

NARRATIVE: CASE EVENT DATE: 20220208
